FAERS Safety Report 15949796 (Version 3)
Quarter: 2019Q2

REPORT INFORMATION
  Report Type: Spontaneous
  Country: US (occurrence: US)
  Receive Date: 20190212
  Receipt Date: 20190510
  Transmission Date: 20190711
  Serious: Yes (Other)
  Sender: FDA-Public Use
  Company Number: US-AMGEN-USASP2019017747

PATIENT
  Age: 87 Year
  Sex: Female

DRUGS (1)
  1. REPATHA [Suspect]
     Active Substance: EVOLOCUMAB
     Indication: BLOOD CHOLESTEROL INCREASED
     Dosage: 140 MG, UNK
     Route: 065

REACTIONS (12)
  - Asthenia [Unknown]
  - Fatigue [Unknown]
  - Migraine [Recovering/Resolving]
  - Weight decreased [Unknown]
  - Hypertension [Unknown]
  - Acarodermatitis [Unknown]
  - Product storage error [Unknown]
  - Rash generalised [Unknown]
  - Gastrointestinal ulcer [Unknown]
  - Peripheral swelling [Unknown]
  - Somnolence [Unknown]
  - Blood glucose increased [Unknown]
